FAERS Safety Report 10233819 (Version 1)
Quarter: 2014Q2

REPORT INFORMATION
  Report Type: Spontaneous
  Country: US (occurrence: None)
  Receive Date: 20140612
  Receipt Date: 20140612
  Transmission Date: 20141212
  Serious: No
  Sender: FDA-Public Use
  Company Number: None

PATIENT
  Sex: 0

DRUGS (1)
  1. OCTREOTIDE [Suspect]
     Dosage: INJECTABLE

REACTIONS (3)
  - Product label issue [None]
  - Circumstance or information capable of leading to medication error [None]
  - Product quality issue [None]
